FAERS Safety Report 8452477-2 (Version None)
Quarter: 2012Q2

REPORT INFORMATION
  Report Type: 
  Country: None (occurrence: None)
  Receive Date: 20120620
  Receipt Date: 20120415
  Transmission Date: 20120825
  Serious: No
  Sender: FDA-Public Use
  Company Number: US-VERTEX PHARMACEUTICALS INC.-AE-2012-005264

PATIENT
  Sex: Male
  Weight: 98.064 kg

DRUGS (4)
  1. PEGASYS [Concomitant]
     Indication: HEPATITIS C
     Route: 058
     Dates: start: 20120410, end: 20120415
  2. INCIVEK [Suspect]
     Indication: HEPATITIS C
     Route: 048
     Dates: start: 20120410, end: 20120415
  3. RIBAVIRIN [Concomitant]
     Indication: HEPATITIS C
     Route: 048
     Dates: start: 20120410, end: 20120415
  4. ASPIRIN [Concomitant]
     Route: 048

REACTIONS (8)
  - DYSPNOEA [None]
  - FATIGUE [None]
  - ABDOMINAL PAIN UPPER [None]
  - FEELING OF BODY TEMPERATURE CHANGE [None]
  - HEART RATE INCREASED [None]
  - HEADACHE [None]
  - INSOMNIA [None]
  - DECREASED APPETITE [None]
